FAERS Safety Report 5324465-6 (Version None)
Quarter: 2007Q2

REPORT INFORMATION
  Report Type: 
  Country: None (occurrence: None)
  Receive Date: 20070514
  Receipt Date: 20070503
  Transmission Date: 20071010
  Serious: Yes (Death)
  Sender: FDA-Public Use
  Company Number: US-PFIZER INC-2005167381

PATIENT
  Sex: Female
  Weight: 63.5 kg

DRUGS (3)
  1. BEXTRA [Suspect]
     Indication: PAIN
     Dates: start: 20021001, end: 20031001
  2. BEXTRA [Suspect]
     Indication: INFLAMMATION
  3. BEXTRA [Suspect]
     Indication: CHEST PAIN

REACTIONS (1)
  - MYOCARDIAL INFARCTION [None]
